FAERS Safety Report 8159523-4 (Version None)
Quarter: 2012Q1

REPORT INFORMATION
  Report Type: 
  Country: None (occurrence: None)
  Receive Date: 20120223
  Receipt Date: 20120217
  Transmission Date: 20120608
  Serious: Yes (Hospitalization)
  Sender: FDA-Public Use
  Company Number: US-GILEAD-2012-0051107

PATIENT
  Sex: Female

DRUGS (11)
  1. LETAIRIS [Suspect]
     Indication: PULMONARY ARTERIAL HYPERTENSION
     Dosage: 10 MG, QD
     Dates: start: 20091101
  2. REVATIO [Suspect]
     Indication: PULMONARY ARTERIAL HYPERTENSION
     Dosage: UNK
     Dates: start: 20050101
  3. OXYGEN [Suspect]
     Indication: PULMONARY ARTERIAL HYPERTENSION
     Dosage: 6 L, UNK
     Route: 045
  4. TYVASO [Suspect]
     Indication: PULMONARY ARTERIAL HYPERTENSION
     Dosage: 36 ?G, QID
     Route: 055
     Dates: start: 20110405
  5. METHOTREXATE [Concomitant]
     Indication: RENAL CANCER
     Dosage: 10 MG, QD
     Route: 048
  6. DETROL [Concomitant]
     Dosage: UNK
     Route: 048
  7. CELEBREX [Suspect]
     Indication: RHEUMATOID ARTHRITIS
     Dosage: UNK
     Route: 048
     Dates: start: 20110801
  8. TRACLEER [Concomitant]
  9. NEXIUM [Concomitant]
     Indication: GASTROOESOPHAGEAL REFLUX DISEASE
     Dosage: UNK
     Route: 048
  10. VITAMIN D [Concomitant]
     Dosage: UNK
     Route: 048
     Dates: start: 20080101
  11. ENBREL [Concomitant]
     Indication: RHEUMATOID ARTHRITIS
     Dosage: UNK, Q1WK
     Route: 030
     Dates: start: 20070101

REACTIONS (2)
  - UPPER GASTROINTESTINAL HAEMORRHAGE [None]
  - RESPIRATORY TRACT HAEMORRHAGE [None]
